FAERS Safety Report 9379447 (Version 3)
Quarter: 2013Q3

REPORT INFORMATION
  Report Type: Spontaneous
  Country: JP (occurrence: JP)
  Receive Date: 20130702
  Receipt Date: 20130711
  Transmission Date: 20140515
  Serious: Yes (Hospitalization, Other)
  Sender: FDA-Public Use
  Company Number: JP-B.I. PHARMACEUTICALS,INC./RIDGEFIELD-2013-BI-18994GD

PATIENT
  Age: 76 Year
  Sex: Male

DRUGS (3)
  1. PRADAXA [Suspect]
     Route: 048
  2. ASPIRIN [Suspect]
     Route: 048
  3. HEPARIN [Suspect]

REACTIONS (6)
  - Acute respiratory distress syndrome [Unknown]
  - Retroperitoneal haematoma [Unknown]
  - Shock haemorrhagic [Unknown]
  - Arterial haemorrhage [Recovered/Resolved]
  - Tachycardia [Unknown]
  - Haemoglobin decreased [Unknown]
